FAERS Safety Report 5619833-9 (Version None)
Quarter: 2008Q1

REPORT INFORMATION
  Report Type: 
  Country: None (occurrence: None)
  Receive Date: 20080208
  Receipt Date: 20080130
  Transmission Date: 20080703
  Serious: Yes (Hospitalization)
  Sender: FDA-Public Use
  Company Number: DE-JNJFOC-20070505611

PATIENT
  Age: 45 Year
  Sex: Female

DRUGS (7)
  1. REMICADE [Suspect]
     Indication: RHEUMATOID ARTHRITIS
     Route: 042
  2. ISONIAZID [Suspect]
     Indication: ANTIBIOTIC PROPHYLAXIS
  3. METHOTREXATE [Concomitant]
  4. METHOTREXATE [Concomitant]
  5. METHOTREXATE [Concomitant]
  6. METHOTREXATE [Concomitant]
     Indication: DRUG USE FOR UNKNOWN INDICATION
  7. CORTISONE [Concomitant]

REACTIONS (2)
  - DEMYELINATING POLYNEUROPATHY [None]
  - ENCEPHALITIS [None]
